FAERS Safety Report 5379232-4 (Version None)
Quarter: 2007Q3

REPORT INFORMATION
  Report Type: 
  Country: None (occurrence: None)
  Receive Date: 20070705
  Receipt Date: 20070626
  Transmission Date: 20080115
  Serious: Yes (Other)
  Sender: FDA-Public Use
  Company Number: BR-PFIZER INC-2007053637

PATIENT
  Sex: Female
  Weight: 60 kg

DRUGS (3)
  1. DEPO-PROVERA SUSPENSION/INJ [Suspect]
     Indication: CONTRACEPTION
     Route: 030
     Dates: start: 20050201, end: 20050201
  2. DEPO-PROVERA SUSPENSION/INJ [Suspect]
     Route: 030
     Dates: start: 20061121, end: 20061121
  3. DEPO-PROVERA SUSPENSION/INJ [Suspect]
     Route: 030
     Dates: start: 20070201, end: 20070201

REACTIONS (5)
  - DRUG INEFFECTIVE [None]
  - FALLOPIAN TUBE DISORDER [None]
  - INJECTION SITE PAIN [None]
  - PLACENTAL DISORDER [None]
  - UNINTENDED PREGNANCY [None]
